FAERS Safety Report 8240456-X (Version None)
Quarter: 2012Q1

REPORT INFORMATION
  Report Type: 
  Country: None (occurrence: None)
  Receive Date: 20120328
  Receipt Date: 20120322
  Transmission Date: 20120608
  Serious: Yes (Life-Threatening, Hospitalization, Other)
  Sender: FDA-Public Use
  Company Number: CA-NOVOPROD-343413

PATIENT
  Age: 52 Year
  Sex: Female
  Weight: 102.27 kg

DRUGS (15)
  1. INSULIN DETEMIR FLEXPEN [Suspect]
     Dosage: 132 U, QD
     Route: 058
     Dates: start: 20111020, end: 20111020
  2. POTASSIUM CHLORIDE [Concomitant]
     Dosage: 3600 (1200 X 3) MG,
     Route: 048
     Dates: start: 20120116, end: 20120117
  3. SIMVASTATIN [Concomitant]
     Dosage: 20 MG, QD
     Route: 048
     Dates: start: 20120116, end: 20120117
  4. INSULIN DETEMIR FLEXPEN [Suspect]
     Dosage: 126 U, QD
     Route: 058
     Dates: start: 20110531, end: 20110915
  5. NOVORAPID FLEXPEN [Suspect]
     Dosage: 134 U, QD
     Route: 058
     Dates: start: 20120118, end: 20120201
  6. INSULIN DETEMIR FLEXPEN [Suspect]
     Indication: TYPE 2 DIABETES MELLITUS
     Dosage: 120 U, QD
     Route: 058
     Dates: start: 20110412, end: 20110517
  7. INSULIN DETEMIR FLEXPEN [Suspect]
     Dosage: 129 U, QD
     Route: 058
     Dates: start: 20110922, end: 20111012
  8. INSULIN DETEMIR FLEXPEN [Suspect]
     Dosage: 126 U, QD
     Route: 058
     Dates: start: 20111103, end: 20111208
  9. INSULIN DETEMIR FLEXPEN [Suspect]
     Dosage: 123 U, QD
     Route: 058
     Dates: start: 20111216, end: 20120201
  10. RAMIPRIL [Concomitant]
     Dosage: 10 MG, QD
     Route: 048
     Dates: start: 20120117, end: 20120117
  11. NOVORAPID FLEXPEN [Suspect]
     Dosage: 300 U, SINGLE
     Dates: start: 20120115, end: 20120115
  12. DALTEPARIN SODIUM [Concomitant]
     Dosage: 5000 U, QD
     Route: 058
     Dates: start: 20120116, end: 20120117
  13. NOVORAPID FLEXPEN [Suspect]
     Indication: TYPE 2 DIABETES MELLITUS
     Dosage: 2 U, QD
     Route: 058
     Dates: start: 20110623, end: 20110629
  14. INSULIN DETEMIR FLEXPEN [Suspect]
     Dosage: 129 U, QD
     Route: 058
     Dates: start: 20111027, end: 20111027
  15. INSULIN DETEMIR FLEXPEN [Suspect]
     Dosage: 123 U, QD
     Route: 058
     Dates: start: 20110524, end: 20110524

REACTIONS (4)
  - HYPERHIDROSIS [None]
  - INTENTIONAL OVERDOSE [None]
  - ACUTE STRESS DISORDER [None]
  - BLOOD GLUCOSE DECREASED [None]
